FAERS Safety Report 17016162 (Version 1)
Quarter: 2019Q4

REPORT INFORMATION
  Report Type: Spontaneous
  Country: US (occurrence: US)
  Receive Date: 20191111
  Receipt Date: 20191111
  Transmission Date: 20200122
  Serious: No
  Sender: FDA-Public Use
  Company Number: US-PFIZER INC-2019478333

PATIENT
  Sex: Male
  Weight: 69 kg

DRUGS (3)
  1. DOXAZOSIN MESILATE [Suspect]
     Active Substance: DOXAZOSIN MESYLATE
     Indication: PROSTATIC DISORDER
     Dosage: 2 MG, 2X/DAY
     Route: 048
     Dates: start: 201910
  2. AMLODIPINE [Concomitant]
     Active Substance: AMLODIPINE BESYLATE
     Indication: BLOOD PRESSURE ABNORMAL
     Dosage: 2.5 MG, 1X/DAY
     Route: 048
     Dates: start: 2017
  3. RESTERAL [Concomitant]
     Indication: SLEEP DISORDER
     Dosage: 15 MG, 1X/DAY
     Route: 048

REACTIONS (3)
  - Drug ineffective for unapproved indication [Not Recovered/Not Resolved]
  - Off label use [Unknown]
  - Micturition disorder [Unknown]

NARRATIVE: CASE EVENT DATE: 201910
